FAERS Safety Report 25052583 (Version 1)
Quarter: 2025Q1

REPORT INFORMATION
  Report Type: Spontaneous
  Country: CA (occurrence: CA)
  Receive Date: 20250307
  Receipt Date: 20250307
  Transmission Date: 20250408
  Serious: Yes (Life-Threatening, Other)
  Sender: ASCEND THERAPEUTICS US, LLC
  Company Number: CA-Ascend Therapeutics US, LLC-2172513

PATIENT
  Age: 53 Year
  Sex: Female

DRUGS (2)
  1. ESTROGEL [Suspect]
     Active Substance: ESTRADIOL
     Indication: Menopause
  2. ESTROGEL [Suspect]
     Active Substance: ESTRADIOL

REACTIONS (7)
  - Balance disorder [Recovered/Resolved]
  - Wrong dose [Recovered/Resolved]
  - Nausea [Recovered/Resolved]
  - Palpitations [Recovered/Resolved]
  - Dizziness [Recovered/Resolved]
  - Coordination abnormal [Recovered/Resolved]
  - Clumsiness [Recovered/Resolved]
